FAERS Safety Report 4905777-4 (Version None)
Quarter: 2006Q1

REPORT INFORMATION
  Report Type: 
  Country: None (occurrence: None)
  Receive Date: 20060208
  Receipt Date: 20051007
  Transmission Date: 20060701
  Serious: Yes (Hospitalization, Disabling, Other)
  Sender: FDA-Public Use
  Company Number: US-MERCK-0510USA05658

PATIENT
  Age: 51 Year
  Sex: Male
  Weight: 107 kg

DRUGS (2)
  1. VIOXX [Suspect]
     Indication: MUSCLE STRAIN
     Route: 048
  2. VIOXX [Suspect]
     Indication: MUSCLE INJURY
     Route: 048

REACTIONS (6)
  - CARDIOVASCULAR DISORDER [None]
  - CHEST PAIN [None]
  - JOINT INJURY [None]
  - MENISCUS LESION [None]
  - MYOCARDIAL INFARCTION [None]
  - VERTIGO [None]
